FAERS Safety Report 7441065-2 (Version None)
Quarter: 2011Q2

REPORT INFORMATION
  Report Type: 
  Country: None (occurrence: None)
  Receive Date: 20110427
  Receipt Date: 20080812
  Transmission Date: 20111010
  Serious: Yes (Other)
  Sender: FDA-Public Use
  Company Number: DE-GENENTECH-317560

PATIENT
  Age: 85 Year
  Sex: Female

DRUGS (1)
  1. LUCENTIS [Suspect]
     Indication: MACULAR DEGENERATION
     Dosage: UNK
     Route: 031
     Dates: start: 20080602

REACTIONS (6)
  - IMPATIENCE [None]
  - INFLUENZA [None]
  - EYE PAIN [None]
  - VISUAL ACUITY REDUCED [None]
  - EYE IRRITATION [None]
  - DEPRESSION [None]
